FAERS Safety Report 4828072-0 (Version None)
Quarter: 2005Q4

REPORT INFORMATION
  Report Type: 
  Country: None (occurrence: None)
  Receive Date: 20051110
  Receipt Date: 20051103
  Transmission Date: 20060501
  Serious: Yes (Hospitalization, Other)
  Sender: FDA-Public Use
  Company Number: 2005150551

PATIENT
  Age: 94 Year
  Sex: Female

DRUGS (3)
  1. LYRICA [Suspect]
     Indication: DYSAESTHESIA
     Dosage: ORAL
     Route: 048
  2. CARVEDILOL [Concomitant]
  3. HYDROCHLOROTHIAZIDE [Concomitant]

REACTIONS (5)
  - GENERAL PHYSICAL HEALTH DETERIORATION [None]
  - HAEMORRHAGE INTRACRANIAL [None]
  - LOSS OF CONSCIOUSNESS [None]
  - PNEUMONIA [None]
  - RESPIRATORY FAILURE [None]
